FAERS Safety Report 16472566 (Version 1)
Quarter: 2019Q2

REPORT INFORMATION
  Report Type: Spontaneous
  Country: US (occurrence: US)
  Receive Date: 20190515
  Receipt Date: 20190515
  Transmission Date: 20190711
  Serious: No
  Sender: FDA-Public Use
  Company Number: None

PATIENT
  Age: 53 Year
  Sex: Female

DRUGS (1)
  1. REMICADE [Suspect]
     Active Substance: INFLIXIMAB
     Dates: start: 201904, end: 201904

REACTIONS (5)
  - Fine motor skill dysfunction [None]
  - Chest pain [None]
  - Dyspnoea [None]
  - Influenza like illness [None]
  - Back pain [None]

NARRATIVE: CASE EVENT DATE: 20190515
